FAERS Safety Report 8303653-0 (Version None)
Quarter: 2012Q2

REPORT INFORMATION
  Report Type: 
  Country: None (occurrence: None)
  Receive Date: 20120423
  Receipt Date: 20120417
  Transmission Date: 20120825
  Serious: Yes (Life-Threatening, Hospitalization, Other)
  Sender: FDA-Public Use
  Company Number: FR-PFIZER INC-2011127260

PATIENT
  Age: 36 Year
  Sex: Male
  Weight: 105 kg

DRUGS (8)
  1. PREDNISONE TAB [Suspect]
     Dosage: 10 MG, 1X/DAY
     Route: 048
  2. PREDNISOLONE [Suspect]
     Dosage: 60 MG, UNK
     Route: 048
     Dates: start: 20081101, end: 20081219
  3. LAMICTAL [Concomitant]
     Indication: EPILEPSY
     Dosage: 200 MG, 1X/DAY
  4. PREDNISONE TAB [Suspect]
     Indication: THROMBOCYTOPENIC PURPURA
     Dosage: 60 MG, 1X/DAY
     Route: 048
     Dates: start: 20081101, end: 20081219
  5. SOLU-MEDROL [Suspect]
     Dosage: 60 MG, 1X/DAY
  6. PREDNISONE TAB [Suspect]
     Dosage: 80 MG, 1X/DAY
     Route: 048
     Dates: start: 20081129
  7. CLONAZEPAM [Concomitant]
     Indication: EPILEPSY
     Dosage: 2 MG, 1X/DAY
  8. SOLU-MEDROL [Suspect]
     Indication: THROMBOCYTOPENIC PURPURA
     Dosage: 80 MG, 1X/DAY
     Dates: start: 20081124, end: 20081219

REACTIONS (23)
  - COMA [None]
  - VISUAL ACUITY REDUCED [None]
  - ACTIVITIES OF DAILY LIVING IMPAIRED [None]
  - SLEEP APNOEA SYNDROME [None]
  - HAEMATOMA [None]
  - HEADACHE [None]
  - QUADRIPARESIS [None]
  - WEIGHT INCREASED [None]
  - THROMBOCYTOPENIC PURPURA [None]
  - STATUS EPILEPTICUS [None]
  - MYOPATHY [None]
  - MUSCULOSKELETAL PAIN [None]
  - FALL [None]
  - PARAESTHESIA [None]
  - VERTIGO [None]
  - RESTLESSNESS [None]
  - AGGRESSION [None]
  - BACK PAIN [None]
  - PANIC ATTACK [None]
  - HYPOKINESIA [None]
  - GAIT DISTURBANCE [None]
  - MUSCLE RUPTURE [None]
  - CENTRAL OBESITY [None]
